FAERS Safety Report 8218826-5 (Version None)
Quarter: 2012Q1

REPORT INFORMATION
  Report Type: 
  Country: None (occurrence: None)
  Receive Date: 20120319
  Receipt Date: 20120313
  Transmission Date: 20120608
  Serious: Yes (Death, Hospitalization, Other)
  Sender: FDA-Public Use
  Company Number: PHHY2012HU022204

PATIENT
  Sex: Female
  Weight: 76 kg

DRUGS (16)
  1. NITRODERM [Concomitant]
     Dosage: 10 MG, UNK
  2. FUROSEMIDE [Concomitant]
     Dosage: 2-2-1, DAILY
  3. ASPIRIN [Concomitant]
     Dosage: 100 MG, QD
  4. AMLODIPINE [Concomitant]
     Dosage: 10 MG, DAILY
  5. NITRODERM [Concomitant]
     Dosage: 5 MG, UNK
  6. RAMIPRIL [Concomitant]
     Dosage: 5 MG/25 MG, DAILY
     Dates: start: 20080101
  7. THEOPHYLLINE [Concomitant]
     Dosage: 400 MG, DAILY
  8. FRONTIN [Concomitant]
  9. HUMULIN R [Concomitant]
  10. CORVATON [Concomitant]
     Dosage: UNK, DAILY
  11. BISOPROLOL FUMARATE [Concomitant]
     Dosage: 2.5 MG, DAILY
  12. CLONAZEPAM [Concomitant]
     Dosage: 3.5 MG, DAILY
  13. LAEVOLAC [Concomitant]
     Dosage: 3X1 TABLESPOON DAILY
  14. DIGITOXIN TAB [Concomitant]
     Dosage: UNK, 1X1 DAILY
  15. PANTOPRAZOLE [Concomitant]
     Dosage: UNK, DAILY
  16. LETROZOLE [Suspect]
     Dosage: 1 DF, DAILY
     Dates: start: 20070401

REACTIONS (10)
  - LUNG DISORDER [None]
  - CARDIAC FAILURE [None]
  - HYPERTENSION [None]
  - DEATH [None]
  - GENERAL PHYSICAL HEALTH DETERIORATION [None]
  - ANAEMIA [None]
  - WEIGHT INCREASED [None]
  - CARBOHYDRATE METABOLISM DISORDER [None]
  - MYELODYSPLASTIC SYNDROME [None]
  - MUSCULAR WEAKNESS [None]
